FAERS Safety Report 5602247-5 (Version None)
Quarter: 2008Q1

REPORT INFORMATION
  Report Type: 
  Country: None (occurrence: None)
  Receive Date: 20080125
  Receipt Date: 20080111
  Transmission Date: 20080703
  Serious: Yes (Hospitalization)
  Sender: FDA-Public Use
  Company Number: ES-AMGEN-US258981

PATIENT
  Age: 59 Year
  Sex: Female
  Weight: 71 kg

DRUGS (12)
  1. ENBREL [Suspect]
     Indication: ANKYLOSING SPONDYLITIS
     Dosage: UNKNOWN
     Route: 058
     Dates: start: 20071129, end: 20071220
  2. METHOTREXATE [Suspect]
     Indication: ANKYLOSING SPONDYLITIS
     Route: 048
     Dates: start: 20030225
  3. OMEPRAZOLE [Concomitant]
     Indication: PROPHYLAXIS AGAINST GASTROINTESTINAL ULCER
     Route: 048
     Dates: start: 20000807
  4. CEMIDON [Concomitant]
     Indication: ANTIBIOTIC PROPHYLAXIS
     Route: 048
     Dates: start: 20071018
  5. RISEDRONIC ACID [Concomitant]
     Indication: OSTEOPOROSIS
     Route: 048
     Dates: start: 20071010
  6. SIMVASTATIN [Concomitant]
     Indication: HYPERCHOLESTEROLAEMIA
     Route: 048
  7. LEDERFOLIN [Concomitant]
     Route: 065
     Dates: start: 20071018
  8. PHENYLBUTAZONE [Concomitant]
     Indication: ANKYLOSING SPONDYLITIS
     Route: 065
  9. FERROGRADUMET [Concomitant]
     Indication: IRON DEFICIENCY ANAEMIA
     Route: 048
  10. DACORTIN [Concomitant]
     Indication: ANKYLOSING SPONDYLITIS
     Route: 048
  11. TRAMADOL HCL [Concomitant]
     Indication: ANALGESIA
     Route: 048
     Dates: start: 20070921
  12. IDEOS [Concomitant]
     Indication: OSTEOPOROSIS
     Route: 048
     Dates: start: 20070828

REACTIONS (1)
  - RESPIRATORY TRACT INFECTION [None]
